APPROVED DRUG PRODUCT: CLINDESSE
Active Ingredient: CLINDAMYCIN PHOSPHATE
Strength: EQ 2% BASE
Dosage Form/Route: CREAM;VAGINAL
Application: N050793 | Product #001
Applicant: PADAGIS US LLC
Approved: Nov 30, 2004 | RLD: Yes | RS: Yes | Type: RX

PATENTS:
Patent 9789057 | Expires: Dec 2, 2026